APPROVED DRUG PRODUCT: PROCAINAMIDE HYDROCHLORIDE
Active Ingredient: PROCAINAMIDE HYDROCHLORIDE
Strength: 250MG
Dosage Form/Route: CAPSULE;ORAL
Application: A083287 | Product #001
Applicant: WATSON LABORATORIES INC
Approved: Approved Prior to Jan 1, 1982 | RLD: No | RS: No | Type: DISCN